FAERS Safety Report 9749705 (Version 1)
Quarter: 2013Q4

REPORT INFORMATION
  Report Type: Spontaneous
  Country: FR (occurrence: FR)
  Receive Date: 20131212
  Receipt Date: 20131212
  Transmission Date: 20140711
  Serious: Yes (Hospitalization)
  Sender: FDA-Public Use
  Company Number: FR-BRISTOL-MYERS SQUIBB COMPANY-19903228

PATIENT
  Age: 69 Year
  Sex: Male

DRUGS (9)
  1. ERBITUX [Suspect]
     Dates: start: 20130319, end: 201307
  2. SERESTA [Concomitant]
  3. VENTOLINE [Concomitant]
  4. SPIRIVA [Concomitant]
  5. SERETIDE [Concomitant]
  6. AIROMIR [Concomitant]
  7. CRESTOR [Concomitant]
  8. KARDEGIC [Concomitant]
  9. VITAMIN D [Concomitant]

REACTIONS (1)
  - Glomerulonephritis [Unknown]
